FAERS Safety Report 9783097 (Version 1)
Quarter: 2013Q4

REPORT INFORMATION
  Report Type: Spontaneous
  Country: SK (occurrence: None)
  Receive Date: 20131223
  Receipt Date: 20131223
  Transmission Date: 20140711
  Serious: Yes (Life-Threatening, Hospitalization)
  Sender: FDA-Public Use
  Company Number: WIL-010-13-SK

PATIENT
  Age: 25 Year
  Sex: Female

DRUGS (1)
  1. WILATE [Suspect]
     Indication: VON WILLEBRAND^S DISEASE
     Dosage: 900 IU 91X 1/D) INTRAVENOUS (NOT OTHEWISE SPECIFIED)
     Route: 042
     Dates: start: 20130625, end: 20130625

REACTIONS (1)
  - Anaphylactic reaction [None]
